FAERS Safety Report 5473348-X (Version None)
Quarter: 2007Q4

REPORT INFORMATION
  Report Type: 
  Country: None (occurrence: None)
  Receive Date: 20071001
  Receipt Date: 20070925
  Transmission Date: 20080405
  Serious: Yes (Other)
  Sender: FDA-Public Use
  Company Number: JP-AVENTIS-200712554JP

PATIENT
  Sex: Male

DRUGS (3)
  1. LANTUS [Suspect]
     Dosage: DOSE: 7-8 UNITS
     Route: 058
  2. LANTUS [Suspect]
     Dosage: DOSE: 10 UNITS
     Route: 058
  3. OPTICLIK (INSULIN INJECTION PEN) [Suspect]

REACTIONS (6)
  - CATARACT [None]
  - HYPOGLYCAEMIA [None]
  - INTENTIONAL OVERDOSE [None]
  - TREMOR [None]
  - VISUAL ACUITY REDUCED [None]
  - VISUAL DISTURBANCE [None]
